FAERS Safety Report 12225231 (Version 1)
Quarter: 2016Q1

REPORT INFORMATION
  Report Type: Spontaneous
  Country: US (occurrence: None)
  Receive Date: 20160330
  Receipt Date: 20160330
  Transmission Date: 20160526
  Serious: Yes (Life-Threatening, Disabling)
  Sender: FDA-Public Use
  Company Number: None

PATIENT
  Age: 65 Year
  Sex: Female
  Weight: 68.04 kg

DRUGS (6)
  1. BUTRANS [Suspect]
     Active Substance: BUPRENORPHINE
     Indication: PAIN
     Dosage: 1 PATCH EVERY 7 DAYS EVERY 7 DAYS PATCH ON SKIN
     Route: 061
     Dates: start: 20160316, end: 20160321
  2. VITAMIN (OVER 50) [Concomitant]
  3. TYLENOL [Concomitant]
     Active Substance: ACETAMINOPHEN
  4. ECOTRIN [Concomitant]
     Active Substance: ASPIRIN
  5. CALCIUM [Concomitant]
     Active Substance: CALCIUM
  6. FIORICET [Concomitant]
     Active Substance: ACETAMINOPHEN\BUTALBITAL\CAFFEINE

REACTIONS (12)
  - Nausea [None]
  - Application site erythema [None]
  - Malaise [None]
  - Vomiting [None]
  - Back pain [None]
  - Diarrhoea [None]
  - Device use error [None]
  - Dizziness [None]
  - Headache [None]
  - Migraine [None]
  - Palpitations [None]
  - Anaphylactic reaction [None]

NARRATIVE: CASE EVENT DATE: 20160321
